FAERS Safety Report 17162777 (Version 1)
Quarter: 2019Q4

REPORT INFORMATION
  Report Type: Spontaneous
  Country: US (occurrence: US)
  Receive Date: 20191216
  Receipt Date: 20191216
  Transmission Date: 20200122
  Serious: No
  Sender: FDA-Public Use
  Company Number: None

PATIENT
  Age: 43 Year
  Sex: Female
  Weight: 41.85 kg

DRUGS (1)
  1. ATORVASTATIN CALCIUM TABLETS, USP 10 MG [Suspect]
     Active Substance: ATORVASTATIN CALCIUM
     Indication: BLOOD CHOLESTEROL INCREASED
     Route: 048
     Dates: start: 20190610, end: 20191202

REACTIONS (4)
  - Arthralgia [None]
  - Pain in extremity [None]
  - Vision blurred [None]
  - Influenza like illness [None]

NARRATIVE: CASE EVENT DATE: 20191030
